FAERS Safety Report 8116981-9 (Version None)
Quarter: 2012Q1

REPORT INFORMATION
  Report Type: 
  Country: None (occurrence: None)
  Receive Date: 20120131
  Receipt Date: 20120126
  Transmission Date: 20120608
  Serious: Yes (Hospitalization, Other)
  Sender: FDA-Public Use
  Company Number: DAV-AE-MTX-12-08

PATIENT
  Age: 17 Year
  Sex: Male

DRUGS (5)
  1. HYDROCORTISONE [Concomitant]
  2. CETIRIZINE HCL [Concomitant]
  3. MONTELUKAST [Concomitant]
  4. METHOTREXATE [Suspect]
     Indication: LYMPHOCYTIC LEUKAEMIA
     Dosage: INTRAVENOUSLY
     Route: 042
  5. CHLORPHENIRAMINE MALEATE [Concomitant]

REACTIONS (4)
  - SKIN TEST POSITIVE [None]
  - NAUSEA [None]
  - HYPOTENSION [None]
  - ANAPHYLACTIC REACTION [None]
